FAERS Safety Report 8686677 (Version 2)
Quarter: 2012Q4

REPORT INFORMATION
  Report Type: 
  Country: US (occurrence: US)
  Receive Date: 20120727
  Receipt Date: 20120917
  Transmission Date: 20130627
  Serious: Yes (Hospitalization)
  Sender: FDA-Public Use
  Company Number: US-BIOGENIDEC-2012BI026968

PATIENT
  Age: 53 Year
  Sex: Female

DRUGS (8)
  1. AVONEX [Suspect]
     Indication: MULTIPLE SCLEROSIS
     Route: 030
     Dates: start: 20070404
  2. AVONEX [Suspect]
     Indication: MULTIPLE SCLEROSIS
     Route: 030
     Dates: start: 201111
  3. CARDIZEM CD [Concomitant]
     Route: 048
     Dates: start: 20110922
  4. SERTRALINE HCL [Concomitant]
     Route: 048
     Dates: start: 20110922
  5. ZOLOFT [Concomitant]
     Route: 048
     Dates: start: 20110922
  6. IBUPROFEN [Concomitant]
     Route: 048
  7. ASPIRIN [Concomitant]
     Route: 048
  8. MULTIVITAMIN [Concomitant]
     Route: 048

REACTIONS (3)
  - Hepatic enzyme increased [Recovered/Resolved]
  - Arthralgia [Unknown]
  - Osteoarthritis [Not Recovered/Not Resolved]
